FAERS Safety Report 13549284 (Version 1)
Quarter: 2017Q2

REPORT INFORMATION
  Report Type: Spontaneous
  Country: US (occurrence: US)
  Receive Date: 20170516
  Receipt Date: 20170516
  Transmission Date: 20170830
  Serious: No
  Sender: FDA-Public Use
  Company Number: US-BIOGEN-203212

PATIENT
  Sex: Female
  Weight: 55.84 kg

DRUGS (1)
  1. AVONEX [Suspect]
     Active Substance: INTERFERON BETA-1A
     Indication: MULTIPLE SCLEROSIS
     Route: 030
     Dates: start: 19980901, end: 19990916

REACTIONS (2)
  - Platelet count decreased [Recovered/Resolved]
  - Multiple sclerosis relapse [Recovered/Resolved]
